FAERS Safety Report 21964575 (Version 1)
Quarter: 2023Q1

REPORT INFORMATION
  Report Type: Spontaneous
  Country: IT (occurrence: IT)
  Receive Date: 20230207
  Receipt Date: 20230207
  Transmission Date: 20230417
  Serious: Yes (Death, Hospitalization)
  Sender: FDA-Public Use
  Company Number: IT-TEVA-2023-IT-2851703

PATIENT
  Age: 55 Year
  Sex: Female

DRUGS (18)
  1. EPIRUBICIN [Suspect]
     Active Substance: EPIRUBICIN
     Indication: Hormone receptor positive breast cancer
     Dosage: ADJUVANT CHEMOTHERAPY
     Route: 065
  2. EPIRUBICIN [Suspect]
     Active Substance: EPIRUBICIN
     Indication: Invasive lobular breast carcinoma
  3. PACLITAXEL [Suspect]
     Active Substance: PACLITAXEL
     Indication: Hormone receptor positive breast cancer
     Dosage: ADJUVANT CHEMOTHERAPY
     Route: 065
  4. PACLITAXEL [Suspect]
     Active Substance: PACLITAXEL
     Indication: Invasive lobular breast carcinoma
  5. EXEMESTANE [Suspect]
     Active Substance: EXEMESTANE
     Indication: Hormone receptor positive breast cancer
     Route: 065
  6. EXEMESTANE [Suspect]
     Active Substance: EXEMESTANE
     Indication: Invasive lobular breast carcinoma
  7. DOXORUBICIN HYDROCHLORIDE [Suspect]
     Active Substance: DOXORUBICIN HYDROCHLORIDE
     Indication: Hormone receptor positive breast cancer
     Route: 065
  8. DOXORUBICIN HYDROCHLORIDE [Suspect]
     Active Substance: DOXORUBICIN HYDROCHLORIDE
     Indication: Invasive lobular breast carcinoma
  9. ERIBULIN [Suspect]
     Active Substance: ERIBULIN
     Indication: Hormone receptor positive breast cancer
     Route: 065
  10. ERIBULIN [Suspect]
     Active Substance: ERIBULIN
     Indication: Invasive lobular breast carcinoma
  11. CYCLOPHOSPHAMIDE [Suspect]
     Active Substance: CYCLOPHOSPHAMIDE
     Indication: Hormone receptor positive breast cancer
     Dosage: ADJUVANT CHEMOTHERAPY
     Route: 065
  12. CYCLOPHOSPHAMIDE [Suspect]
     Active Substance: CYCLOPHOSPHAMIDE
     Indication: Invasive lobular breast carcinoma
  13. LETROZOLE [Concomitant]
     Active Substance: LETROZOLE
     Indication: Hormone receptor positive breast cancer
     Route: 065
  14. LETROZOLE [Concomitant]
     Active Substance: LETROZOLE
     Indication: Invasive lobular breast carcinoma
  15. FULVESTRANT [Concomitant]
     Active Substance: FULVESTRANT
     Indication: Hormone receptor positive breast cancer
     Route: 065
  16. FULVESTRANT [Concomitant]
     Active Substance: FULVESTRANT
     Indication: Invasive lobular breast carcinoma
  17. Palpociclib [Concomitant]
     Indication: Hormone receptor positive breast cancer
     Route: 065
  18. Palpociclib [Concomitant]
     Indication: Invasive lobular breast carcinoma

REACTIONS (1)
  - Drug ineffective [Fatal]
